FAERS Safety Report 20524112 (Version 1)
Quarter: 2022Q1

REPORT INFORMATION
  Report Type: Report from Study
  Country: US (occurrence: US)
  Receive Date: 20220228
  Receipt Date: 20220228
  Transmission Date: 20220423
  Serious: No
  Sender: FDA-Public Use
  Company Number: US-HRARD-2021000334

PATIENT
  Sex: Female

DRUGS (9)
  1. METYRAPONE [Suspect]
     Active Substance: METYRAPONE
     Dosage: 500 MG BID
     Route: 048
     Dates: start: 20210211
  2. METYRAPONE [Suspect]
     Active Substance: METYRAPONE
     Dosage: 250 MG PER DAY
     Route: 048
  3. ALBUTEROL AER HFA [Concomitant]
  4. ALPRAZOLAM [Concomitant]
     Active Substance: ALPRAZOLAM
  5. KETOCONAZOLE [Concomitant]
     Active Substance: KETOCONAZOLE
  6. TIROSINT [Concomitant]
     Active Substance: LEVOTHYROXINE SODIUM
  7. VITAMIN B12 [Concomitant]
     Active Substance: CYANOCOBALAMIN
  8. VITAMIN B2 [Concomitant]
     Active Substance: RIBOFLAVIN
  9. VITAMIN D [Concomitant]
     Active Substance: VITAMIN D NOS

REACTIONS (6)
  - Abdominal distension [Not Recovered/Not Resolved]
  - Constipation [Not Recovered/Not Resolved]
  - Diarrhoea [Not Recovered/Not Resolved]
  - Nausea [Not Recovered/Not Resolved]
  - Vomiting [Not Recovered/Not Resolved]
  - Off label use [Not Recovered/Not Resolved]

NARRATIVE: CASE EVENT DATE: 20210101
